FAERS Safety Report 5816596-9 (Version None)
Quarter: 2008Q3

REPORT INFORMATION
  Report Type: 
  Country: None (occurrence: None)
  Receive Date: 20080721
  Receipt Date: 20080711
  Transmission Date: 20090109
  Serious: Yes (Other)
  Sender: FDA-Public Use
  Company Number: US-ALLERGAN-0806899US

PATIENT
  Sex: Female

DRUGS (2)
  1. BOTOX [Suspect]
     Indication: DRUG USE FOR UNKNOWN INDICATION
     Dosage: 185 UNITS, SINGLE
     Route: 030
     Dates: start: 20080519, end: 20080519
  2. BOTOX [Suspect]
     Dosage: 165 UNITS, SINGLE
     Route: 030
     Dates: start: 20080201, end: 20080201

REACTIONS (2)
  - DYSPHAGIA [None]
  - MUSCULAR WEAKNESS [None]
